FAERS Safety Report 19395909 (Version 1)
Quarter: 2021Q2

REPORT INFORMATION
  Report Type: Spontaneous
  Country: US (occurrence: US)
  Receive Date: 20210609
  Receipt Date: 20210609
  Transmission Date: 20210717
  Serious: No
  Sender: FDA-Public Use
  Company Number: US-MYLANLABS-2021M1030807

PATIENT
  Sex: Female

DRUGS (1)
  1. ARMODAFINIL TABLETS [Suspect]
     Active Substance: ARMODAFINIL
     Indication: PRODUCT USED FOR UNKNOWN INDICATION
     Dosage: 250 MILLIGRAM
     Dates: start: 20210524

REACTIONS (2)
  - Product dispensing issue [Not Recovered/Not Resolved]
  - Product packaging quantity issue [Not Recovered/Not Resolved]

NARRATIVE: CASE EVENT DATE: 20210524
